FAERS Safety Report 7073279-8 (Version None)
Quarter: 2010Q4

REPORT INFORMATION
  Report Type: 
  Country: None (occurrence: None)
  Receive Date: 20101029
  Receipt Date: 20100520
  Transmission Date: 20110411
  Serious: No
  Sender: FDA-Public Use
  Company Number: A0860620A

PATIENT
  Age: 53 Year
  Sex: Female

DRUGS (5)
  1. ADVAIR DISKUS 100/50 [Suspect]
     Indication: BRONCHIAL DISORDER
     Dosage: 1PUFF TWICE PER DAY
     Route: 055
     Dates: start: 20090101, end: 20090101
  2. CLARINEX [Concomitant]
  3. XYZAL [Concomitant]
  4. SINGULAIR [Concomitant]
  5. PROVENTIL [Concomitant]

REACTIONS (2)
  - PRURITUS [None]
  - RASH [None]
